FAERS Safety Report 23676862 (Version 2)
Quarter: 2024Q2

REPORT INFORMATION
  Report Type: Spontaneous
  Country: US (occurrence: None)
  Receive Date: 20240327
  Receipt Date: 20240423
  Transmission Date: 20240716
  Serious: Yes (Hospitalization)
  Sender: FDA-Public Use
  Company Number: 2024A069844

PATIENT
  Sex: Male

DRUGS (1)
  1. BREZTRI [Suspect]
     Active Substance: BUDESONIDE\FORMOTEROL\GLYCOPYRROLATE
     Dosage: 160MCG/9MCG/4.8MCG (120 ACTUATIONS EACH)
     Route: 055

REACTIONS (5)
  - Pleural effusion [Unknown]
  - Bronchitis [Unknown]
  - Dyspnoea [Unknown]
  - Device malfunction [Unknown]
  - Device use issue [Unknown]
